FAERS Safety Report 16743652 (Version 2)
Quarter: 2024Q3

REPORT INFORMATION
  Report Type: Spontaneous
  Country: IT (occurrence: IT)
  Receive Date: 20190827
  Receipt Date: 20240920
  Transmission Date: 20241017
  Serious: Yes (Hospitalization)
  Sender: EMD SERONO INC
  Company Number: IT-MERCK HEALTHCARE KGAA-9111423

PATIENT
  Age: 78 Year
  Sex: Male

DRUGS (7)
  1. METFORMIN [Suspect]
     Active Substance: METFORMIN HYDROCHLORIDE
     Indication: Type 2 diabetes mellitus
     Dosage: FREQUENCY TEXT: IN THE EVENING
     Dates: start: 2006
  2. GLIMEPIRIDE [Suspect]
     Active Substance: GLIMEPIRIDE
     Indication: Type 2 diabetes mellitus
     Dosage: FREQUENCY TEXT: IN THE MORNING
     Dates: start: 2006
  3. HALCION [Suspect]
     Active Substance: TRIAZOLAM
     Indication: Insomnia
     Dosage: FREQUENCY TEXT: IN THE EVENING
     Dates: start: 2005
  4. GABAPENTIN [Concomitant]
     Active Substance: GABAPENTIN
     Indication: Product used for unknown indication
     Dates: start: 2018
  5. IRBESARTAN [Concomitant]
     Active Substance: IRBESARTAN
     Indication: Product used for unknown indication
     Dosage: FREQUENCY TEXT: IN THE EVENING
     Dates: start: 2000
  6. COUMADIN [Concomitant]
     Active Substance: WARFARIN SODIUM
     Indication: Product used for unknown indication
     Dosage: VARIABLE DOSAGE (1/2 TABLET TO 3/4)
     Dates: start: 2006
  7. PAROXETINE HYDROCHLORIDE [Concomitant]
     Active Substance: PAROXETINE HYDROCHLORIDE\PAROXETINE HYDROCHLORIDE ANHYDROUS
     Indication: Product used for unknown indication
     Dates: start: 2017

REACTIONS (3)
  - Neurodermatitis [Not Recovered/Not Resolved]
  - Hyperkeratosis [Not Recovered/Not Resolved]
  - Peripheral swelling [Unknown]
